FAERS Safety Report 4906193-1 (Version None)
Quarter: 2006Q1

REPORT INFORMATION
  Report Type: 
  Country: None (occurrence: None)
  Receive Date: 20060207
  Receipt Date: 20060207
  Transmission Date: 20060701
  Serious: Yes (Hospitalization)
  Sender: FDA-Public Use
  Company Number: None

PATIENT
  Age: 47 Year
  Sex: Male
  Weight: 89.6 kg

DRUGS (12)
  1. BUSULFAN [Suspect]
     Dosage: 64 MG/QD/PO
     Route: 048
     Dates: start: 20051220, end: 20051223
  2. CYTOXAN [Suspect]
     Dosage: 4900 MG/QD/IV
     Route: 042
     Dates: start: 20051224, end: 20051225
  3. CYCLOSPORINE [Concomitant]
  4. NORVASC [Concomitant]
  5. ACTIGALL [Concomitant]
  6. REGLAN [Concomitant]
  7. ACYCLOVIR SODIUM [Concomitant]
  8. PRILOSEC [Concomitant]
  9. PENTAMIDINE [Concomitant]
  10. VORICONAZOLE [Concomitant]
  11. DULOXETINE [Concomitant]
  12. LAMOTRIGINE [Concomitant]

REACTIONS (4)
  - CHILLS [None]
  - GRAFT VERSUS HOST DISEASE IN SKIN [None]
  - PYREXIA [None]
  - STEM CELL TRANSPLANT [None]
